FAERS Safety Report 8577873-4 (Version None)
Quarter: 2012Q3

REPORT INFORMATION
  Report Type: 
  Country: None (occurrence: None)
  Receive Date: 20120808
  Receipt Date: 20120731
  Transmission Date: 20120928
  Serious: No
  Sender: FDA-Public Use
  Company Number: US-BIOGENIDEC-2012BI029130

PATIENT
  Age: 62 Year
  Sex: Female

DRUGS (4)
  1. TYSABRI [Suspect]
     Indication: MULTIPLE SCLEROSIS
     Route: 042
  2. STEROIDS [Concomitant]
     Indication: STEROID THERAPY
     Dates: start: 20120724
  3. STEROIDS [Concomitant]
     Indication: SURGERY
     Dates: start: 20120724
  4. TYSABRI [Suspect]
     Route: 042
     Dates: start: 20091021

REACTIONS (2)
  - STEROID THERAPY [None]
  - SURGERY [None]
